FAERS Safety Report 5646171-0 (Version None)
Quarter: 2008Q1

REPORT INFORMATION
  Report Type: 
  Country: None (occurrence: None)
  Receive Date: 20080227
  Receipt Date: 20080218
  Transmission Date: 20080703
  Serious: Yes (Other)
  Sender: FDA-Public Use
  Company Number: CHNY2008BR00940

PATIENT
  Age: 70 Year
  Sex: Male
  Weight: 100 kg

DRUGS (4)
  1. NUPERCAINAL (NCH)(CINCHOCAINE) OINTMENT [Suspect]
     Indication: HAEMORRHOIDS
     Dosage: 1 DF, BID, RECTAL; 1 DF, BID, RECTAL
     Route: 054
     Dates: start: 20080217, end: 20080217
  2. NUPERCAINAL (NCH)(CINCHOCAINE) OINTMENT [Suspect]
     Indication: HAEMORRHOIDS
     Dosage: 1 DF, BID, RECTAL; 1 DF, BID, RECTAL
     Route: 054
     Dates: start: 20030201
  3. SYNTHROID [Concomitant]
  4. SIMVASTATIN [Concomitant]

REACTIONS (2)
  - ARRHYTHMIA [None]
  - DRUG INEFFECTIVE [None]
